FAERS Safety Report 22597417 (Version 1)
Quarter: 2023Q2

REPORT INFORMATION
  Report Type: Spontaneous
  Country: US (occurrence: None)
  Receive Date: 20230614
  Receipt Date: 20230614
  Transmission Date: 20230721
  Serious: No
  Sender: FDA-Public Use
  Company Number: US-Axsome Therapeutics, Inc.-AXS202303-000422

PATIENT
  Age: 44 Year
  Sex: Male

DRUGS (3)
  1. AUVELITY [Suspect]
     Active Substance: BUPROPION HYDROCHLORIDE\DEXTROMETHORPHAN HYDROBROMIDE
     Indication: Major depression
     Route: 065
     Dates: start: 20230312
  2. AUVELITY [Suspect]
     Active Substance: BUPROPION HYDROCHLORIDE\DEXTROMETHORPHAN HYDROBROMIDE
     Route: 065
  3. CITALOPRAM [Concomitant]
     Active Substance: CITALOPRAM HYDROBROMIDE
     Indication: Product used for unknown indication
     Route: 065

REACTIONS (4)
  - Fatigue [Unknown]
  - Dizziness [Unknown]
  - Somnolence [Unknown]
  - Inappropriate schedule of product administration [Unknown]
